FAERS Safety Report 10157948 (Version 1)
Quarter: 2014Q2

REPORT INFORMATION
  Report Type: Spontaneous
  Country: US (occurrence: US)
  Receive Date: 20140507
  Receipt Date: 20140507
  Transmission Date: 20141212
  Serious: Yes (Death, Hospitalization)
  Sender: FDA-Public Use
  Company Number: US-GLAXOSMITHKLINE-A1071198A

PATIENT
  Age: 65 Year
  Sex: Female

DRUGS (5)
  1. FLOVENT [Suspect]
     Indication: CHRONIC OBSTRUCTIVE PULMONARY DISEASE
     Dosage: 1PUFF TWICE PER DAY
     Route: 055
  2. SEREVENT [Suspect]
     Indication: CHRONIC OBSTRUCTIVE PULMONARY DISEASE
     Dosage: 1PUFF TWICE PER DAY
     Route: 055
  3. METFORMIN [Concomitant]
  4. DIABETES MEDICATION [Concomitant]
  5. ANTIDEPRESSANT [Concomitant]

REACTIONS (1)
  - Chronic obstructive pulmonary disease [Fatal]
